FAERS Safety Report 23520086 (Version 1)
Quarter: 2024Q1

REPORT INFORMATION
  Report Type: Spontaneous
  Country: SK (occurrence: SK)
  Receive Date: 20240214
  Receipt Date: 20240214
  Transmission Date: 20240409
  Serious: Yes (Hospitalization, Other)
  Sender: FDA-Public Use
  Company Number: SK-TEVA-VS-3139730

PATIENT
  Age: 39 Year
  Sex: Female

DRUGS (5)
  1. OLANZAPINE [Suspect]
     Active Substance: OLANZAPINE
     Indication: Negative symptoms in schizophrenia
     Dosage: 15 MILLIGRAM, ONCE A DAY (PREVIOUSLY TAKEN OLANZAPINE 10 MG WITH START IN JAN-2022)
     Route: 065
     Dates: start: 202202, end: 202202
  2. OLANZAPINE [Suspect]
     Active Substance: OLANZAPINE
     Indication: Acute psychosis
  3. PALIPERIDONE [Suspect]
     Active Substance: PALIPERIDONE
     Indication: Schizophrenia
     Dosage: 6 MILLIGRAM, ONCE A DAY
     Route: 065
  4. QUETIAPINE [Suspect]
     Active Substance: QUETIAPINE
     Indication: Product used for unknown indication
     Dosage: 600 MILLIGRAM, ONCE A DAY (PATIENT ALONE DECREASED DOSE)
     Route: 065
     Dates: start: 202202
  5. ARIPIPRAZOLE [Suspect]
     Active Substance: ARIPIPRAZOLE
     Indication: Schizophrenia
     Dosage: 15 MILLIGRAM, ONCE A DAY
     Route: 065

REACTIONS (5)
  - Acute psychosis [Unknown]
  - Hallucination [Unknown]
  - Affective disorder [Unknown]
  - Condition aggravated [Recovered/Resolved]
  - Sleep disorder [Unknown]

NARRATIVE: CASE EVENT DATE: 20230601
